FAERS Safety Report 8551632-0 (Version None)
Quarter: 2012Q3

REPORT INFORMATION
  Report Type: 
  Country: None (occurrence: None)
  Receive Date: 20120730
  Receipt Date: 20120723
  Transmission Date: 20120928
  Serious: Yes (Hospitalization)
  Sender: FDA-Public Use
  Company Number: US-US-EMD SERONO, INC.-7148259

PATIENT
  Sex: Male

DRUGS (5)
  1. VENLAFAXINE [Concomitant]
     Indication: DEPRESSION
  2. LISINOPRIL [Concomitant]
     Indication: HYPERTENSION
  3. TRILEPTAL [Concomitant]
     Indication: PARTIAL SEIZURES
  4. NUVIGIL [Concomitant]
     Indication: FATIGUE
     Dates: end: 20120101
  5. REBIF [Suspect]
     Indication: MULTIPLE SCLEROSIS
     Route: 058
     Dates: start: 20070521

REACTIONS (1)
  - ACUTE MYOCARDIAL INFARCTION [None]
